FAERS Safety Report 9660974 (Version 1)
Quarter: 2013Q4

REPORT INFORMATION
  Report Type: Spontaneous
  Country: IT (occurrence: IT)
  Receive Date: 20131031
  Receipt Date: 20131031
  Transmission Date: 20140711
  Serious: Yes (Other)
  Sender: FDA-Public Use
  Company Number: IT-MYLANLABS-2013S1023845

PATIENT
  Age: 38 Year
  Sex: Male

DRUGS (4)
  1. LORAZEPAM [Suspect]
     Indication: SCHIZOPHRENIA
     Route: 048
     Dates: start: 20131013, end: 20131013
  2. STILNOX [Suspect]
     Indication: SCHIZOPHRENIA
     Route: 048
     Dates: start: 20131013, end: 20131013
  3. CLOPIXOL [Suspect]
     Indication: SCHIZOPHRENIA
     Route: 048
     Dates: start: 20131013, end: 20131013
  4. TEGRETOL [Suspect]
     Indication: SCHIZOPHRENIA
     Route: 048
     Dates: start: 20131013, end: 20131013

REACTIONS (3)
  - Asthenia [Recovering/Resolving]
  - Drug abuse [Recovering/Resolving]
  - Sopor [Recovering/Resolving]
